FAERS Safety Report 7442499-2 (Version None)
Quarter: 2011Q2

REPORT INFORMATION
  Report Type: 
  Country: None (occurrence: None)
  Receive Date: 20110428
  Receipt Date: 20100913
  Transmission Date: 20111010
  Serious: No
  Sender: FDA-Public Use
  Company Number: US-ASTRAZENECA-2009UW06559

PATIENT
  Age: 43 Year
  Sex: Female
  Weight: 57.6 kg

DRUGS (5)
  1. ZOMIG [Suspect]
     Route: 048
  2. SYNTHROID [Concomitant]
     Indication: HYPOTHYROIDISM
  3. ZOMIG [Suspect]
     Route: 048
  4. AUGMENTIN [Concomitant]
     Indication: SINUSITIS
  5. CELEXA [Concomitant]
     Indication: MIGRAINE PROPHYLAXIS

REACTIONS (2)
  - MIGRAINE [None]
  - DRUG INEFFECTIVE [None]
